FAERS Safety Report 8472795 (Version 5)
Quarter: 2013Q4

REPORT INFORMATION
  Report Type: Report from Study
  Country: DE (occurrence: DE)
  Receive Date: 20120322
  Receipt Date: 20131016
  Transmission Date: 20140711
  Serious: Yes (Hospitalization)
  Sender: FDA-Public Use
  Company Number: DE-JNJFOC-20120308371

PATIENT
  Age: 18 Year
  Sex: Female
  Weight: 67.3 kg

DRUGS (9)
  1. GOLIMUMAB [Suspect]
     Indication: JUVENILE IDIOPATHIC ARTHRITIS
     Route: 058
     Dates: start: 20110502
  2. GOLIMUMAB [Suspect]
     Indication: JUVENILE IDIOPATHIC ARTHRITIS
     Route: 058
     Dates: start: 20120309
  3. GOLIMUMAB [Suspect]
     Indication: JUVENILE IDIOPATHIC ARTHRITIS
     Route: 058
     Dates: start: 20111117
  4. METHOTREXATE [Suspect]
     Indication: JUVENILE IDIOPATHIC ARTHRITIS
     Route: 048
     Dates: start: 20101215
  5. ESOMEPRAZOLE [Concomitant]
     Route: 048
     Dates: start: 20110502
  6. FOLIC ACID [Concomitant]
     Route: 048
  7. PREDNISONE [Concomitant]
     Route: 048
  8. DICLOFENAC [Concomitant]
     Route: 048
  9. PARACETAMOL [Concomitant]
     Route: 048
     Dates: start: 20120202

REACTIONS (2)
  - Upper respiratory tract infection [Recovered/Resolved]
  - Juvenile idiopathic arthritis [Recovered/Resolved]
